FAERS Safety Report 7642067-3 (Version None)
Quarter: 2011Q3

REPORT INFORMATION
  Report Type: 
  Country: None (occurrence: None)
  Receive Date: 20110728
  Receipt Date: 20110719
  Transmission Date: 20111222
  Serious: Yes (Death, Hospitalization, Other)
  Sender: FDA-Public Use
  Company Number: US-ELI_LILLY_AND_COMPANY-US201107005698

PATIENT
  Age: 62 Year
  Sex: Female

DRUGS (3)
  1. EFFIENT [Suspect]
     Indication: ACUTE MYOCARDIAL INFARCTION
     Dosage: 60 MG
     Route: 042
  2. COUMADIN [Concomitant]
     Dosage: UNK, UNKNOWN
     Route: 065
  3. EFFIENT [Suspect]
     Dosage: 10 MG, QD

REACTIONS (5)
  - THROMBOSIS IN DEVICE [None]
  - ARRHYTHMIA [None]
  - DEATH [None]
  - ANXIETY [None]
  - HYPERCOAGULATION [None]
